FAERS Safety Report 4524225-X (Version None)
Quarter: 2004Q4

REPORT INFORMATION
  Report Type: 
  Country: None (occurrence: None)
  Receive Date: 20041209
  Receipt Date: 20041124
  Transmission Date: 20050328
  Serious: Yes (Life-Threatening)
  Sender: FDA-Public Use
  Company Number: 210823

PATIENT
  Age: 60 Year
  Sex: Female

DRUGS (10)
  1. HERCEPTIN [Suspect]
     Indication: BREAST CANCER METASTATIC
     Dosage: INTRAVENOUS
     Route: 042
     Dates: start: 20041019, end: 20041116
  2. TAXOL [Suspect]
     Indication: BREAST CANCER METASTATIC
     Dosage: SINGLE, INTRAVENOUS
     Route: 042
     Dates: start: 20041116, end: 20041116
  3. IMMUNOTHERAPY (ANTIGEN) (ALLERGENIC EXTRACTS) [Concomitant]
  4. IMODIUM [Concomitant]
  5. DEHYDROCODEINUM (DIHYDROCODEINE BITARTRATE) [Concomitant]
  6. OPIUM TINCTURE (OPIUM) [Concomitant]
  7. NAVOBAN (TROPISETRON HYDROCHLORIDE) [Concomitant]
  8. DEXAMETHASONE [Concomitant]
  9. STARLIX [Concomitant]
  10. TAVEGIL (CLEMASTINE FUMARATE) [Concomitant]

REACTIONS (3)
  - DUODENAL ULCER PERFORATION [None]
  - PEPTIC ULCER PERFORATION [None]
  - PERITONITIS [None]
